FAERS Safety Report 19282467 (Version 6)
Quarter: 2022Q1

REPORT INFORMATION
  Report Type: Report from Study
  Country: JP (occurrence: JP)
  Receive Date: 20210521
  Receipt Date: 20220329
  Transmission Date: 20220423
  Serious: Yes (Hospitalization)
  Sender: FDA-Public Use
  Company Number: JP-CHUGAI-2021000874

PATIENT
  Age: 75 Year
  Sex: Female
  Weight: 45.7 kg

DRUGS (9)
  1. ATEZOLIZUMAB [Suspect]
     Active Substance: ATEZOLIZUMAB
     Indication: Hormone receptor positive breast cancer
     Dosage: DAY1, DAY15
     Route: 042
     Dates: start: 20210202
  2. ATEZOLIZUMAB [Suspect]
     Active Substance: ATEZOLIZUMAB
     Indication: HER2 negative breast cancer
  3. PACLITAXEL [Suspect]
     Active Substance: PACLITAXEL
     Indication: Hormone receptor positive breast cancer
     Dosage: 85 MILLIGRAM/SQ. METER, DAY1, DAY8, DAY15
     Route: 042
     Dates: start: 20210202
  4. PACLITAXEL [Suspect]
     Active Substance: PACLITAXEL
     Indication: HER2 negative breast cancer
  5. BEVACIZUMAB [Suspect]
     Active Substance: BEVACIZUMAB
     Indication: Hormone receptor positive breast cancer
     Dosage: 10 MILLIGRAM/KILOGRAM, DAY1, DAY15
     Route: 042
     Dates: start: 20210202
  6. BEVACIZUMAB [Suspect]
     Active Substance: BEVACIZUMAB
     Indication: HER2 negative breast cancer
  7. ELDECALCITOL [Concomitant]
     Active Substance: ELDECALCITOL
     Indication: Osteoporosis
     Route: 048
     Dates: start: 20210309
  8. HERBALS [Concomitant]
     Active Substance: HERBALS
     Indication: Osteoporosis
     Route: 048
     Dates: start: 20210206
  9. LOXOPROFEN SODIUM [Concomitant]
     Active Substance: LOXOPROFEN SODIUM
     Indication: Arthralgia
     Route: 061
     Dates: start: 20210402

REACTIONS (3)
  - Hyperthyroidism [Recovering/Resolving]
  - Febrile neutropenia [Recovered/Resolved]
  - Adrenal insufficiency [Not Recovered/Not Resolved]

NARRATIVE: CASE EVENT DATE: 20210506
